FAERS Safety Report 6174430-4 (Version None)
Quarter: 2009Q2

REPORT INFORMATION
  Report Type: 
  Country: None (occurrence: None)
  Receive Date: 20090430
  Receipt Date: 20080603
  Transmission Date: 20091009
  Serious: No
  Sender: FDA-Public Use
  Company Number: US-ASTRAZENECA-2008UW11204

PATIENT
  Age: 85 Year
  Sex: Male

DRUGS (11)
  1. NEXIUM [Suspect]
     Indication: NAUSEA
     Route: 048
     Dates: start: 20080101
  2. LOVASTATIN [Concomitant]
  3. AMLODIPINE [Concomitant]
  4. FUROSEMIDE [Concomitant]
  5. LISINOPRIL [Concomitant]
  6. TERAZOSIN HCL [Concomitant]
  7. AVAPRO [Concomitant]
  8. REQUIP [Concomitant]
  9. TRAMADOL HCL [Concomitant]
  10. ALPRAZOLAM [Concomitant]
  11. INSULIN [Concomitant]

REACTIONS (2)
  - NAUSEA [None]
  - RETCHING [None]
